FAERS Safety Report 6136161-6 (Version None)
Quarter: 2009Q1

REPORT INFORMATION
  Report Type: 
  Country: None (occurrence: None)
  Receive Date: 20090330
  Receipt Date: 20090320
  Transmission Date: 20090719
  Serious: Yes (Hospitalization)
  Sender: FDA-Public Use
  Company Number: US-AMGEN-US339517

PATIENT
  Sex: Female
  Weight: 78.1 kg

DRUGS (2)
  1. ENBREL [Suspect]
     Indication: PSORIASIS
  2. INFLIXIMAB [Suspect]
     Route: 042
     Dates: start: 20071010

REACTIONS (3)
  - COLON CANCER [None]
  - HAEMANGIOMA OF LIVER [None]
  - INTESTINAL OBSTRUCTION [None]
